FAERS Safety Report 5614778-2 (Version None)
Quarter: 2008Q1

REPORT INFORMATION
  Report Type: 
  Country: None (occurrence: None)
  Receive Date: 20080111
  Receipt Date: 20071016
  Transmission Date: 20080703
  Serious: Yes (Other)
  Sender: FDA-Public Use
  Company Number: US-WYE-H00699807

PATIENT
  Age: 51 Year
  Sex: Female
  Weight: 72.64 kg

DRUGS (1)
  1. PREMPRO [Suspect]
     Indication: MENOPAUSE
     Dosage: ^VARIOUS DOSES^, ORAL
     Route: 048
     Dates: start: 19800101, end: 20050101

REACTIONS (1)
  - BREAST CANCER [None]
